FAERS Safety Report 9747063 (Version 1)
Quarter: 2013Q4

REPORT INFORMATION
  Report Type: Spontaneous
  Country: GB (occurrence: GB)
  Receive Date: 20131211
  Receipt Date: 20131211
  Transmission Date: 20140711
  Serious: Yes (Disabling)
  Sender: FDA-Public Use
  Company Number: GB-B.I. PHARMACEUTICALS,INC./RIDGEFIELD-2013-BI-40332UK

PATIENT
  Sex: Female
  Weight: 82 kg

DRUGS (11)
  1. PRADAXA [Suspect]
     Indication: THROMBOSIS PROPHYLAXIS
     Route: 048
     Dates: start: 20131020, end: 20131113
  2. PARACETAMOL [Concomitant]
     Indication: ANALGESIC THERAPY
     Dosage: 4 G
     Route: 048
  3. CODEINE PHOSPHATE [Concomitant]
     Indication: ANALGESIC THERAPY
     Dosage: STRENGTH: 20-30 MG
     Route: 048
  4. QUININE BISULFATE [Concomitant]
     Indication: MUSCLE SPASMS
     Route: 048
  5. CETIRIZINE [Concomitant]
     Indication: ILL-DEFINED DISORDER
     Route: 048
     Dates: start: 201303
  6. TIGER BALM [Concomitant]
     Route: 061
     Dates: start: 20131015
  7. PROBIOTIC (NOT FURTHER SPECIFIED) [Concomitant]
     Route: 048
  8. GLUCOSAMINE [Concomitant]
     Indication: PROBIOTIC THERAPY
     Route: 048
  9. OMEGA 3 [Concomitant]
     Indication: PROBIOTIC THERAPY
     Route: 048
  10. GARLIC [Concomitant]
     Indication: PROBIOTIC THERAPY
     Route: 048
  11. MULTI-VITAMIN [Concomitant]
     Indication: PROBIOTIC THERAPY
     Route: 048

REACTIONS (3)
  - Dysphagia [Recovered/Resolved]
  - Dyspepsia [Recovered/Resolved]
  - Dyspepsia [Recovered/Resolved]
